FAERS Safety Report 16944502 (Version 2)
Quarter: 2019Q4

REPORT INFORMATION
  Report Type: Spontaneous
  Country: DE (occurrence: DE)
  Receive Date: 20191022
  Receipt Date: 20191231
  Transmission Date: 20200122
  Serious: Yes (Other)
  Sender: FDA-Public Use
  Company Number: DE-SUN PHARMACEUTICAL INDUSTRIES LTD-2019RR-225042

PATIENT
  Sex: Female
  Weight: 56 kg

DRUGS (5)
  1. CIPRO BASICS 250MG FILMTABLETTEN [Suspect]
     Active Substance: CIPROFLOXACIN HYDROCHLORIDE
     Indication: BLOOD URINE PRESENT
     Dosage: 2 DOSAGE FORM, DAILY
     Route: 065
     Dates: start: 20191002, end: 20191004
  2. CIPRO BASICS 250MG FILMTABLETTEN [Suspect]
     Active Substance: CIPROFLOXACIN HYDROCHLORIDE
     Indication: PROTEINURIA
  3. EZETIMIBIB-RATIOPHARM 10MG TABLETS [Concomitant]
     Indication: PRODUCT USED FOR UNKNOWN INDICATION
     Dosage: 1 DOSAGE FORM, DAILY
     Route: 065
     Dates: start: 20190929, end: 20191003
  4. CIPRO BASICS 250MG FILMTABLETTEN [Suspect]
     Active Substance: CIPROFLOXACIN HYDROCHLORIDE
     Indication: CULTURE URINE POSITIVE
  5. ATORVASTATIN-RATIOPHARM 20 MG FILM TABLETS [Concomitant]
     Indication: PRODUCT USED FOR UNKNOWN INDICATION
     Dosage: 1 DOSAGE FORM, DAILY
     Route: 065
     Dates: start: 20190929, end: 20191003

REACTIONS (11)
  - Tachycardia [Recovering/Resolving]
  - Nausea [Recovering/Resolving]
  - Myalgia [Not Recovered/Not Resolved]
  - Breast pain [Recovering/Resolving]
  - Appetite disorder [Recovered/Resolved]
  - Disturbance in attention [Recovering/Resolving]
  - Treatment noncompliance [Unknown]
  - Tremor [Recovering/Resolving]
  - Headache [Not Recovered/Not Resolved]
  - Decreased appetite [Recovered/Resolved]
  - Asthenia [Recovering/Resolving]

NARRATIVE: CASE EVENT DATE: 20191002
